FAERS Safety Report 26031784 (Version 3)
Quarter: 2025Q4

REPORT INFORMATION
  Report Type: Spontaneous
  Country: EU (occurrence: EU)
  Receive Date: 20251112
  Receipt Date: 20251217
  Transmission Date: 20260117
  Serious: Yes (Other)
  Sender: AUROBINDO
  Company Number: EU-AUROBINDO-AUR-APL-2025-053835

PATIENT
  Age: 53 Year
  Sex: Female
  Weight: 58 kg

DRUGS (2)
  1. PANTOPRAZOLE SODIUM [Suspect]
     Active Substance: PANTOPRAZOLE SODIUM
     Indication: Gastric prolapse
     Dosage: 20 MILLIGRAM
     Route: 061
  2. PANTOPRAZOLE SODIUM [Suspect]
     Active Substance: PANTOPRAZOLE SODIUM
     Indication: Gastric prolapse
     Dosage: 40 MILLIGRAM
     Route: 061

REACTIONS (3)
  - Dermatitis allergic [Recovering/Resolving]
  - Pruritus [Recovering/Resolving]
  - Product colour issue [Unknown]
